FAERS Safety Report 5571579-1 (Version None)
Quarter: 2007Q4

REPORT INFORMATION
  Report Type: 
  Country: None (occurrence: None)
  Receive Date: 20071219
  Receipt Date: 20071206
  Transmission Date: 20080405
  Serious: Yes (Other)
  Sender: FDA-Public Use
  Company Number: 2007-168868-NL

PATIENT
  Age: 32 Year
  Sex: Female
  Weight: 84.8 kg

DRUGS (1)
  1. IMPLANON [Suspect]
     Indication: CONTRACEPTION
     Dosage: SUBDERMAL
     Route: 059
     Dates: start: 20070105, end: 20071019

REACTIONS (4)
  - ABDOMINAL PAIN [None]
  - HEADACHE [None]
  - MIGRAINE [None]
  - VAGINAL HAEMORRHAGE [None]
